FAERS Safety Report 7347903-6 (Version None)
Quarter: 2011Q1

REPORT INFORMATION
  Report Type: 
  Country: None (occurrence: None)
  Receive Date: 20110311
  Receipt Date: 20110228
  Transmission Date: 20110831
  Serious: Yes (Other)
  Sender: FDA-Public Use
  Company Number: JP-ELI_LILLY_AND_COMPANY-JP201101001563

PATIENT
  Sex: Female

DRUGS (12)
  1. RIMATIL [Concomitant]
     Dosage: 100 D/F, DAILY (1/D)
     Route: 048
  2. MEVAN                              /00880402/ [Concomitant]
     Dosage: 5 D/F, DAILY (1/D)
  3. GASMOTIN [Concomitant]
     Dosage: 5 D/F, 3/D
  4. TAPIZOL [Concomitant]
     Dosage: 30 D/F, DAILY (1/D)
     Route: 048
  5. METHYCOOL [Concomitant]
     Dosage: 500 D/F, 3/D
  6. FORTEO [Suspect]
     Indication: OSTEOPOROSIS
     Dosage: UNK, UNK
     Route: 058
     Dates: start: 20101217, end: 20101226
  7. PRORENAL [Concomitant]
     Dosage: 5 D/F, 3/D
  8. FORTEO [Suspect]
     Dosage: UNK, UNK
     Route: 058
     Dates: start: 20110121
  9. TIZANIDINE HYDROCHLORIDE [Concomitant]
     Dosage: 1 D/F, 3/D
  10. RENIVEZE [Concomitant]
     Dosage: 2.5 D/F, DAILY (1/D)
  11. PREDONINE [Concomitant]
     Dosage: 5 D/F, DAILY (1/D)
  12. OSPAIN [Concomitant]
     Dosage: 200 D/F, 2/D

REACTIONS (3)
  - ABDOMINAL DISCOMFORT [None]
  - DECREASED APPETITE [None]
  - NAUSEA [None]
